FAERS Safety Report 6398517-6 (Version None)
Quarter: 2009Q4

REPORT INFORMATION
  Report Type: 
  Country: None (occurrence: None)
  Receive Date: 20091007
  Receipt Date: 20090930
  Transmission Date: 20100525
  Serious: Yes (Other)
  Sender: FDA-Public Use
  Company Number: 2009SP028124

PATIENT
  Age: 71 Year
  Sex: Female

DRUGS (4)
  1. CELESTONE [Suspect]
     Indication: SCIATICA
  2. URISPAS [Concomitant]
  3. SIMVASTATIN [Concomitant]
  4. COLPOTROPHINE [Concomitant]

REACTIONS (4)
  - AMNESIA [None]
  - FALL [None]
  - PRODUCT SUBSTITUTION ISSUE [None]
  - TREMOR [None]
